FAERS Safety Report 5564785-3 (Version None)
Quarter: 2007Q4

REPORT INFORMATION
  Report Type: 
  Country: None (occurrence: None)
  Receive Date: 20071218
  Receipt Date: 20071207
  Transmission Date: 20080405
  Serious: Yes (Hospitalization, Other)
  Sender: FDA-Public Use
  Company Number: US-ROCHE-435878

PATIENT
  Sex: Male

DRUGS (1)
  1. ACCUTANE [Suspect]
     Indication: ACNE
     Route: 048

REACTIONS (14)
  - ADJUSTMENT DISORDER [None]
  - ALCOHOL ABUSE [None]
  - ANORECTAL DISORDER [None]
  - CHAPPED LIPS [None]
  - CHROMATURIA [None]
  - DEPRESSION [None]
  - DIZZINESS [None]
  - DRUG ABUSE [None]
  - HEADACHE [None]
  - RECTAL HAEMORRHAGE [None]
  - SCHIZOPHRENIA, PARANOID TYPE [None]
  - SUICIDAL BEHAVIOUR [None]
  - SUICIDE ATTEMPT [None]
  - VISION BLURRED [None]
